FAERS Safety Report 19818164 (Version 1)
Quarter: 2021Q3

REPORT INFORMATION
  Report Type: Spontaneous
  Country: CA (occurrence: CA)
  Receive Date: 20210911
  Receipt Date: 20210911
  Transmission Date: 20211014
  Serious: Yes (Life-Threatening, Hospitalization)
  Sender: FDA-Public Use
  Company Number: CA-TEVA-2021-CA-1950965

PATIENT
  Age: 3 Year
  Sex: Male
  Weight: 17 kg

DRUGS (40)
  1. CARBOPLATIN. [Suspect]
     Active Substance: CARBOPLATIN
     Route: 042
  2. LANSOPRAZOLE. [Concomitant]
     Active Substance: LANSOPRAZOLE
  3. NALOXONE [Concomitant]
     Active Substance: NALOXONE
  4. TRIMETHOPRIMSULFAMETHOXAZTRIMETHOPRIMSULFAMETHOXAZOLEOLE [Concomitant]
  5. VANCOMYCIN [Concomitant]
     Active Substance: VANCOMYCIN
  6. CETIRIZINE [Concomitant]
     Active Substance: CETIRIZINE HYDROCHLORIDE
  7. MOMETASONE FUROATE. [Concomitant]
     Active Substance: MOMETASONE FUROATE
  8. VALGANCICLOVIR. [Concomitant]
     Active Substance: VALGANCICLOVIR
  9. THIOTEPA. [Suspect]
     Active Substance: THIOTEPA
     Indication: TRANSPLANT
     Route: 042
  10. DIMENHYDRINATE. [Concomitant]
     Active Substance: DIMENHYDRINATE
  11. DIFICID FILM?COATED TABLET [Concomitant]
  12. FLUCONAZOLE. [Concomitant]
     Active Substance: FLUCONAZOLE
  13. URSODEOXYCHOLIC ACID [Concomitant]
     Active Substance: URSODIOL
  14. SALBUTAMOL [Concomitant]
     Active Substance: ALBUTEROL
  15. CARBOPLATIN. [Suspect]
     Active Substance: CARBOPLATIN
     Route: 042
  16. ALTEPLASE. [Concomitant]
     Active Substance: ALTEPLASE
  17. CALCIUM + VITAMIN D3 [Concomitant]
     Active Substance: CALCIUM CARBONATE\CHOLECALCIFEROL
  18. CICLESONIDE [Concomitant]
     Active Substance: CICLESONIDE
  19. DOCUSATE SODIUM. [Concomitant]
     Active Substance: DOCUSATE SODIUM
  20. OLANZAPINE. [Concomitant]
     Active Substance: OLANZAPINE
  21. ONDANSETRON [Concomitant]
     Active Substance: ONDANSETRON
  22. PANTOPRAZOLE [Concomitant]
     Active Substance: PANTOPRAZOLE
  23. PENTAMIDINE ISETHIONATE INJ 300MG/VIAL BP [Concomitant]
  24. PIPERACILLIN/TAZOBACTAM [Concomitant]
     Active Substance: PIPERACILLIN SODIUM\TAZOBACTAM SODIUM
  25. POLYETHYLENE GLYCOL [Concomitant]
     Active Substance: POLYETHYLENE GLYCOLS
  26. AMITRIPTYLINE [Concomitant]
     Active Substance: AMITRIPTYLINE
  27. DIPHENHYDRAMINE. [Concomitant]
     Active Substance: DIPHENHYDRAMINE
  28. FUROSEMIDE. [Concomitant]
     Active Substance: FUROSEMIDE
  29. GRANISETRON [Concomitant]
     Active Substance: GRANISETRON
  30. METHYLPREDNISOLONE NOS [Concomitant]
     Active Substance: METHYLPREDNISOLONE
  31. METRONIDAZOLE. [Concomitant]
     Active Substance: METRONIDAZOLE
  32. OXYBUTYNIN. [Concomitant]
     Active Substance: OXYBUTYNIN CHLORIDE
     Route: 065
  33. THIOTEPA. [Suspect]
     Active Substance: THIOTEPA
     Route: 042
  34. ATROPINE. [Concomitant]
     Active Substance: ATROPINE
  35. ACYCLOVIR. [Concomitant]
     Active Substance: ACYCLOVIR
  36. CARBOPLATIN. [Suspect]
     Active Substance: CARBOPLATIN
     Indication: TRANSPLANT
     Route: 042
  37. THIOTEPA. [Suspect]
     Active Substance: THIOTEPA
     Route: 042
  38. FILGRASTIM [Concomitant]
     Active Substance: FILGRASTIM
  39. LORAZEPAM. [Concomitant]
     Active Substance: LORAZEPAM
  40. MAGNESIUM [Concomitant]
     Active Substance: MAGNESIUM

REACTIONS (7)
  - Diarrhoea [Recovered/Resolved]
  - Clostridium difficile colitis [Recovered/Resolved]
  - Oral pain [Recovered/Resolved]
  - Mucosal inflammation [Recovered/Resolved]
  - Vomiting [Recovered/Resolved]
  - Abdominal pain [Recovered/Resolved]
  - Clostridium difficile infection [Recovered/Resolved]
